FAERS Safety Report 5797331-X (Version None)
Quarter: 2008Q2

REPORT INFORMATION
  Report Type: 
  Country: None (occurrence: None)
  Receive Date: 20080627
  Receipt Date: 20080613
  Transmission Date: 20081010
  Serious: Yes (Other)
  Sender: FDA-Public Use
  Company Number: THYR-1000056

PATIENT
  Age: 28 Year
  Sex: Female

DRUGS (4)
  1. THYROGEN [Suspect]
     Indication: DIAGNOSTIC PROCEDURE
     Dosage: ONCE, INTRAMUSCULAR
     Route: 030
     Dates: start: 20080524, end: 20080524
  2. VITAMIN D (ERGOCALCIFEROL) TABLET [Concomitant]
  3. OROCAL 500 (CALCIUM CARBONATE) TABLET [Concomitant]
  4. VARNOLINE (DESOGESTREL, ETHINYLESTRADIOL) [Concomitant]

REACTIONS (9)
  - ASTHENIA [None]
  - FEELING HOT [None]
  - HEADACHE [None]
  - HYPERHIDROSIS [None]
  - MALAISE [None]
  - NAUSEA [None]
  - ORTHOSTATIC HYPOTENSION [None]
  - SENSORIMOTOR DISORDER [None]
  - TREMOR [None]
